FAERS Safety Report 5744111-7 (Version None)
Quarter: 2008Q2

REPORT INFORMATION
  Report Type: 
  Country: None (occurrence: None)
  Receive Date: 20080516
  Receipt Date: 20080507
  Transmission Date: 20081010
  Serious: Yes (Hospitalization)
  Sender: FDA-Public Use
  Company Number: 2008S1007940

PATIENT
  Age: 59 Year
  Sex: Male

DRUGS (7)
  1. AZATHIOPRINE [Suspect]
     Indication: CROHN'S DISEASE
     Dosage: 50 MG; DAILY ORAL
     Route: 048
     Dates: start: 20080223, end: 20080316
  2. BUDESONIDE [Concomitant]
  3. CALCICHEW D3 (LEKOVIT CA) [Concomitant]
  4. CETIRIZINE HCL [Concomitant]
  5. RAMIPRIL [Concomitant]
  6. THIAMINE (THIAMINE) [Concomitant]
  7. TRAMADOL HCL [Concomitant]

REACTIONS (1)
  - RASH VESICULAR [None]
